FAERS Safety Report 9282980 (Version 2)
Quarter: 2013Q3

REPORT INFORMATION
  Report Type: Spontaneous
  Country: US (occurrence: US)
  Receive Date: 20130510
  Receipt Date: 20130906
  Transmission Date: 20140515
  Serious: Yes (Hospitalization, Other)
  Sender: FDA-Public Use
  Company Number: US-BAYER-2013-058220

PATIENT
  Age: 39 Year
  Sex: Female
  Weight: 82.54 kg

DRUGS (27)
  1. YAZ [Suspect]
     Dosage: UNK
     Dates: start: 2010, end: 2011
  2. YASMIN [Suspect]
     Dosage: UNK
     Dates: start: 2010, end: 2011
  3. OCELLA [Suspect]
     Dosage: UNK
     Dates: start: 2010, end: 2011
  4. EFFEXOR [Concomitant]
     Indication: ANXIETY
     Dosage: UNK
     Dates: start: 20101015
  5. FENTANYL [Concomitant]
     Dosage: UNK
     Dates: start: 20101015
  6. DILAUDID [Concomitant]
     Dosage: UNK
     Dates: start: 20101015
  7. ZEMURON [Concomitant]
  8. LEVAQUIN [Concomitant]
     Dosage: UNK
     Dates: start: 20101015
  9. VANCOMYCIN [Concomitant]
     Dosage: UNK
     Dates: start: 20101015
  10. MARCAINE [Concomitant]
     Indication: PAIN
     Dosage: UNK
     Dates: start: 20101015
  11. ZOFRAN [Concomitant]
     Dosage: UNK
     Dates: start: 20101015
  12. DEMEROL [Concomitant]
     Dosage: UNK
     Dates: start: 20101015
  13. MORPHINE [Concomitant]
     Dosage: UNK
     Dates: start: 20101015
  14. PHENERGAN [Concomitant]
     Dosage: UNK
     Dates: start: 20101015
  15. SCOPOLAMINE [Concomitant]
     Indication: NAUSEA
     Dosage: UNK
     Dates: start: 20101015
  16. OXYGEN [Concomitant]
  17. LORTAB [Concomitant]
     Indication: PAIN
     Dosage: UNK
     Dates: start: 20101016
  18. REGLAN [Concomitant]
     Dosage: UNK
     Dates: start: 20101016
  19. ANCEF [Concomitant]
     Dosage: UNK
     Dates: start: 20101016
  20. VITAMIN B12 [Concomitant]
  21. HYDROCODONE W/ACETAMINOPHEN [Concomitant]
     Dosage: UNK
     Dates: start: 20101022
  22. EFFEXOR XR [Concomitant]
     Dosage: UNK
     Dates: start: 20101104
  23. PEG 3350 AND ELECTROLYTES [Concomitant]
     Dosage: UNK
     Dates: start: 20101130
  24. NEXIUM [Concomitant]
     Dosage: UNK
     Dates: start: 20101207
  25. VERSED [Concomitant]
     Dosage: UNK
     Dates: start: 20101207
  26. CLINDAMYCIN [Concomitant]
  27. BACTRIM [Concomitant]

REACTIONS (9)
  - Deep vein thrombosis [None]
  - Thrombosis [None]
  - Abdominal pain [None]
  - Injury [None]
  - Emotional distress [None]
  - Pain [None]
  - General physical health deterioration [None]
  - Anxiety [None]
  - Pain [None]
